FAERS Safety Report 7364776-6 (Version None)
Quarter: 2011Q1

REPORT INFORMATION
  Report Type: 
  Country: None (occurrence: None)
  Receive Date: 20110321
  Receipt Date: 20110205
  Transmission Date: 20110831
  Serious: Yes (Death, Other)
  Sender: FDA-Public Use
  Company Number: US-BAXTER-2010BH002559

PATIENT
  Age: 81 Year
  Sex: Male

DRUGS (2)
  1. HEPARIN SODIUM INJECTION [Suspect]
     Indication: PRODUCT USED FOR UNKNOWN INDICATION
     Route: 065
     Dates: start: 20080101
  2. HEPARIN SODIUM INJECTION [Suspect]
     Route: 065
     Dates: start: 20080201

REACTIONS (7)
  - DEATH [None]
  - DYSPNOEA [None]
  - RENAL FAILURE [None]
  - GENERAL PHYSICAL HEALTH DETERIORATION [None]
  - HYPERTENSION [None]
  - FAILURE TO THRIVE [None]
  - DECREASED APPETITE [None]
